FAERS Safety Report 8976285 (Version 1)
Quarter: 2012Q4

REPORT INFORMATION
  Report Type: 
  Country: CA (occurrence: CA)
  Receive Date: 20121220
  Receipt Date: 20121220
  Transmission Date: 20130627
  Serious: Yes (Hospitalization)
  Sender: FDA-Public Use
  Company Number: CA-AMGEN-CANSP2012079782

PATIENT
  Age: 91 Year
  Sex: Male
  Weight: 75 kg

DRUGS (2)
  1. PROLIA [Suspect]
     Indication: OSTEOPOROSIS
     Dosage: UNK
     Dates: start: 20120824
  2. PROLIA [Suspect]

REACTIONS (4)
  - Upper limb fracture [Unknown]
  - Spinal fracture [Unknown]
  - Fall [Unknown]
  - Walking aid user [Unknown]
